FAERS Safety Report 18887164 (Version 2)
Quarter: 2021Q1

REPORT INFORMATION
  Report Type: Report from Study
  Country: FR (occurrence: FR)
  Receive Date: 20210212
  Receipt Date: 20210301
  Transmission Date: 20210420
  Serious: Yes (Hospitalization)
  Sender: FDA-Public Use
  Company Number: FR-PFIZER INC-2021136816

PATIENT
  Age: 77 Year
  Sex: Female
  Weight: 61 kg

DRUGS (4)
  1. ELIQUIS [Concomitant]
     Active Substance: APIXABAN
     Indication: PHLEBITIS
     Dosage: UNK
     Route: 048
     Dates: start: 2002, end: 2002
  2. EPOETIN ALFA [Concomitant]
     Active Substance: ERYTHROPOIETIN
     Indication: ANAEMIA
     Route: 048
  3. XALKORI [Suspect]
     Active Substance: CRIZOTINIB
     Dosage: 250 MG, 2X/DAY
     Dates: start: 20170811, end: 20180213
  4. IZALGI [Concomitant]
     Active Substance: ACETAMINOPHEN\OPIUM
     Indication: PAIN

REACTIONS (2)
  - Neutropenia [Recovered/Resolved]
  - Hyperthermia [Recovered/Resolved]

NARRATIVE: CASE EVENT DATE: 20180624
